FAERS Safety Report 8517240-2 (Version None)
Quarter: 2012Q3

REPORT INFORMATION
  Report Type: 
  Country: None (occurrence: None)
  Receive Date: 20120718
  Receipt Date: 20120712
  Transmission Date: 20120928
  Serious: Yes (Hospitalization)
  Sender: FDA-Public Use
  Company Number: RO-B.I. PHARMACEUTICALS,INC./RIDGEFIELD-2012-AP-00584AP

PATIENT
  Sex: Female
  Weight: 70 kg

DRUGS (3)
  1. DIGOXIN [Concomitant]
     Indication: ARRHYTHMIA
     Dosage: 0.25 MG
     Dates: start: 20120522, end: 20120529
  2. PRADAXA [Suspect]
     Indication: ATRIAL FIBRILLATION
     Dosage: 300 MG
     Route: 048
     Dates: start: 20120527, end: 20120529
  3. NITROMINT [Concomitant]
     Indication: ANGINA PECTORIS
     Dosage: 2.6 MG
     Dates: start: 20120522, end: 20120602

REACTIONS (1)
  - ATRIAL FIBRILLATION [None]
